FAERS Safety Report 8419015-1 (Version None)
Quarter: 2012Q2

REPORT INFORMATION
  Report Type: 
  Country: None (occurrence: None)
  Receive Date: 20120607
  Receipt Date: 20120531
  Transmission Date: 20120825
  Serious: Yes (Other)
  Sender: FDA-Public Use
  Company Number: PHEH2012US011144

PATIENT
  Age: 44 Year
  Sex: Female

DRUGS (6)
  1. ADDERALL 5 [Suspect]
     Indication: ATTENTION DEFICIT/HYPERACTIVITY DISORDER
     Dosage: UNK
  2. VYVANSE [Suspect]
     Indication: ATTENTION DEFICIT/HYPERACTIVITY DISORDER
     Dosage: UNK
  3. WELLBUTRIN [Suspect]
     Indication: ATTENTION DEFICIT/HYPERACTIVITY DISORDER
     Dosage: UNK
  4. RITALIN [Suspect]
     Indication: ATTENTION DEFICIT/HYPERACTIVITY DISORDER
     Dosage: UNK
  5. DEXTROAMPHETAMINE AND AMPHETAMINE [Suspect]
     Indication: ATTENTION DEFICIT/HYPERACTIVITY DISORDER
     Dosage: UNK
  6. DEXIDRINE [Suspect]
     Indication: ATTENTION DEFICIT/HYPERACTIVITY DISORDER
     Dosage: UNK

REACTIONS (12)
  - ACNE [None]
  - MOOD SWINGS [None]
  - TINNITUS [None]
  - CONVULSION [None]
  - ANXIETY [None]
  - MUSCLE TIGHTNESS [None]
  - PALPITATIONS [None]
  - DEPRESSION [None]
  - PSYCHOTIC DISORDER [None]
  - ANGER [None]
  - HEARING IMPAIRED [None]
  - TREMOR [None]
